FAERS Safety Report 25907966 (Version 1)
Quarter: 2025Q4

REPORT INFORMATION
  Report Type: Spontaneous
  Country: CN (occurrence: CN)
  Receive Date: 20251010
  Receipt Date: 20251010
  Transmission Date: 20260118
  Serious: Yes (Other)
  Sender: Kenvue
  Company Number: CN-KENVUE-20251002265

PATIENT

DRUGS (1)
  1. RHINOCORT AQUA [Suspect]
     Active Substance: BUDESONIDE
     Indication: Rhinitis
     Dosage: 64 MICROGRAM, TWICE A DAY (ONCE IN THE MORNING AND ONCE IN THE EVENING), INTRANASAL
     Route: 045
     Dates: start: 20250928, end: 20250928

REACTIONS (1)
  - Asphyxia [Recovering/Resolving]

NARRATIVE: CASE EVENT DATE: 20250928
